FAERS Safety Report 8439825-4 (Version None)
Quarter: 2012Q2

REPORT INFORMATION
  Report Type: 
  Country: None (occurrence: None)
  Receive Date: 20120615
  Receipt Date: 20120613
  Transmission Date: 20120825
  Serious: No
  Sender: FDA-Public Use
  Company Number: US-PFIZER INC-2012142698

PATIENT
  Sex: Female
  Weight: 63.492 kg

DRUGS (2)
  1. MAXALT [Concomitant]
     Indication: MIGRAINE
     Dosage: UNK, AS NEEDED
  2. LYRICA [Suspect]
     Indication: BACK PAIN
     Dosage: UNK
     Dates: start: 20120515, end: 20120608

REACTIONS (3)
  - HEART RATE INCREASED [None]
  - FRUSTRATION [None]
  - WEIGHT INCREASED [None]
